FAERS Safety Report 13071869 (Version 1)
Quarter: 2016Q4

REPORT INFORMATION
  Report Type: Report from Study
  Country: RU (occurrence: RU)
  Receive Date: 20161229
  Receipt Date: 20161229
  Transmission Date: 20170207
  Serious: No
  Sender: FDA-Public Use
  Company Number: RU-ROCHE-1870587

PATIENT
  Sex: Female

DRUGS (6)
  1. OSELTAMIVIR [Suspect]
     Active Substance: OSELTAMIVIR
     Indication: INFLUENZA
     Dosage: DURING 5 DAYS
     Route: 048
  2. IMIDAZOLYL ETHANAMIDE PENTANDIOIC ACID [Suspect]
     Active Substance: INGAVIRIN
     Indication: INFLUENZA
     Dosage: FOR 5-7 DAYS
     Route: 065
  3. ZANAMIVIR [Suspect]
     Active Substance: ZANAMIVIR
     Indication: INFLUENZA
     Dosage: FOR 5-7 DAYS
     Route: 065
  4. IMIDAZOLYL ETHANAMIDE PENTANDIOIC ACID [Suspect]
     Active Substance: INGAVIRIN
     Dosage: FOR 5-10 DAYS
     Route: 065
  5. INTERFERON ALFA-2B [Suspect]
     Active Substance: INTERFERON ALFA-2B
     Indication: INFLUENZA
     Dosage: DOSE: 500000 U 2 TIMES A DAY FOR 7-10 DAYS.
     Route: 065
  6. OSELTAMIVIR [Suspect]
     Active Substance: OSELTAMIVIR
     Dosage: DURING 5-10 DAYS
     Route: 048

REACTIONS (2)
  - Pneumonia [Unknown]
  - Maternal exposure during pregnancy [Unknown]
